FAERS Safety Report 24540875 (Version 1)
Quarter: 2024Q4

REPORT INFORMATION
  Report Type: Spontaneous
  Country: ES (occurrence: ES)
  Receive Date: 20241023
  Receipt Date: 20241023
  Transmission Date: 20250115
  Serious: Yes (Hospitalization)
  Sender: PFIZER
  Company Number: ES-ROCHE-10000105755

PATIENT
  Age: 79 Year
  Sex: Male
  Weight: 84.5 kg

DRUGS (21)
  1. RITUXIMAB [Suspect]
     Active Substance: RITUXIMAB
     Indication: B-cell lymphoma
     Dosage: 750 MG, EVERY 3 WEEKS (ON 02-OCT-2024, MOST RECENT DOSE (750 MG) WAS TAKEN PRIOR TO AE/SAE.)
     Route: 042
     Dates: start: 20240710
  2. DOXORUBICIN HYDROCHLORIDE [Suspect]
     Active Substance: DOXORUBICIN HYDROCHLORIDE
     Indication: B-cell lymphoma
     Dosage: 100 MG, EVERY 3 WEEKS (ON 02-OCT-2024, MOST RECENT DOSE (100 MG) WAS TAKEN.)
     Route: 042
     Dates: start: 20240711
  3. GLOFITAMAB [Suspect]
     Active Substance: GLOFITAMAB
     Indication: B-cell lymphoma
     Dosage: 2.5 MG (ON 18-SEP-2024, MOST RECENT DOSE (30 MG) PRIOR TO AE/SAE WAS TAKEN)
     Route: 042
     Dates: start: 20240807
  4. GLOFITAMAB [Suspect]
     Active Substance: GLOFITAMAB
     Dosage: UNK
     Route: 042
  5. POLATUZUMAB VEDOTIN [Suspect]
     Active Substance: POLATUZUMAB VEDOTIN
     Indication: B-cell lymphoma
     Dosage: 153 MG, EVERY 3 WEEKS (N 02-OCT-2024, MOST RECENT DOSE (153 MG) WAS TAKEN)
     Route: 042
     Dates: start: 20240711
  6. CYCLOPHOSPHAMIDE [Suspect]
     Active Substance: CYCLOPHOSPHAMIDE
     Indication: B-cell lymphoma
     Dosage: 1500 MG, EVERY 3 WEEKS (ON 02-OCT-2024, MOST RECENT DOSE (1500 MG) WAS TAKEN)
     Route: 042
     Dates: start: 20240711
  7. PREDNISONE [Suspect]
     Active Substance: PREDNISONE
     Indication: B-cell lymphoma
     Dosage: 80 MG, EVERY 3 WEEKS (ON 06-OCT-2024, MOST RECENT DOSE (100 MG) WAS TAKEN PRIOR TO AE/SAE.)
     Route: 048
     Dates: start: 20240710
  8. TAMSULOSIN [Concomitant]
     Active Substance: TAMSULOSIN
     Indication: Benign prostatic hyperplasia
     Dosage: 0.4 MG, 1X/DAY
     Route: 048
  9. ACYCLOVIR [Concomitant]
     Active Substance: ACYCLOVIR
     Dosage: 800 MG, 1X/DAY
     Route: 048
     Dates: start: 20240712
  10. BROMAZEPAM [Concomitant]
     Active Substance: BROMAZEPAM
     Dosage: 1.5 MG, AS NEEDED
     Route: 048
     Dates: start: 20240722
  11. SIMETHICONE (DIMETHICONE) [Concomitant]
     Active Substance: DIMETHICONE
     Dosage: UNK
     Route: 048
     Dates: start: 20240722
  12. ACETAMINOPHEN [Concomitant]
     Active Substance: ACETAMINOPHEN
     Dosage: 1 G, 1X/DAY
     Route: 042
     Dates: start: 20240911, end: 20240911
  13. ACETAMINOPHEN [Concomitant]
     Active Substance: ACETAMINOPHEN
     Dosage: 1 G, 1X/DAY
     Route: 042
     Dates: start: 20240918, end: 20240918
  14. ACETAMINOPHEN [Concomitant]
     Active Substance: ACETAMINOPHEN
     Dosage: 1 G, 1X/DAY
     Route: 042
     Dates: start: 20241002, end: 20241002
  15. DEXCHLORPHENIRAMINE [Concomitant]
     Active Substance: DEXCHLORPHENIRAMINE
     Dosage: 5 MG, 1X/DAY
     Route: 042
     Dates: start: 20240911, end: 20240911
  16. DEXCHLORPHENIRAMINE [Concomitant]
     Active Substance: DEXCHLORPHENIRAMINE
     Dosage: 5 MG, 1X/DAY
     Route: 042
     Dates: start: 20240918, end: 20240918
  17. DEXCHLORPHENIRAMINE [Concomitant]
     Active Substance: DEXCHLORPHENIRAMINE
     Dosage: 5 MG, 1X/DAY
     Route: 042
     Dates: start: 20241002, end: 20241002
  18. ONDANSETRON [Concomitant]
     Active Substance: ONDANSETRON
     Dosage: 8 MG, 1X/DAY
     Route: 042
     Dates: start: 20240911, end: 20240911
  19. ONDANSETRON [Concomitant]
     Active Substance: ONDANSETRON
     Dosage: 8 MG, 1X/DAY
     Route: 042
     Dates: start: 20241002, end: 20241002
  20. FILGRASTIM [Concomitant]
     Active Substance: FILGRASTIM
     Dosage: 300 UG, 1X/DAY
     Route: 058
     Dates: start: 20240916, end: 20240917
  21. DEXAMETHASONE [Concomitant]
     Active Substance: DEXAMETHASONE
     Dosage: 20 MG, 1X/DAY
     Route: 042
     Dates: start: 20240918, end: 20240918

REACTIONS (1)
  - Neutropenia [Recovered/Resolved]

NARRATIVE: CASE EVENT DATE: 20241009
